FAERS Safety Report 24189888 (Version 2)
Quarter: 2024Q3

REPORT INFORMATION
  Report Type: Spontaneous
  Country: US (occurrence: US)
  Receive Date: 20240808
  Receipt Date: 20240905
  Transmission Date: 20241016
  Serious: Yes (Hospitalization)
  Sender: TEVA
  Company Number: US-TEVA-VS-3227989

PATIENT
  Age: 53 Year
  Sex: Female

DRUGS (1)
  1. PHENYTOIN [Suspect]
     Active Substance: PHENYTOIN
     Indication: Seizure
     Route: 048

REACTIONS (7)
  - Toxicity to various agents [Recovering/Resolving]
  - Liver injury [Recovering/Resolving]
  - Incorrect dose administered [Unknown]
  - Encephalopathy [Recovering/Resolving]
  - Nystagmus [Recovering/Resolving]
  - Drug reaction with eosinophilia and systemic symptoms [Recovering/Resolving]
  - Mental status changes [Recovering/Resolving]
